FAERS Safety Report 15731693 (Version 2)
Quarter: 2018Q4

REPORT INFORMATION
  Report Type: Report from Study
  Country: IT (occurrence: IT)
  Receive Date: 20181217
  Receipt Date: 20181218
  Transmission Date: 20190205
  Serious: Yes (Life-Threatening)
  Sender: FDA-Public Use
  Company Number: PHHO2018IT012887

PATIENT
  Age: 68 Year
  Sex: Female

DRUGS (40)
  1. OLMESARTAN MEDOXOMIL. [Concomitant]
     Active Substance: OLMESARTAN MEDOXOMIL
     Indication: HYPERTENSION
     Dosage: UNK
     Route: 065
  2. ESOMEPRAZOLE. [Concomitant]
     Active Substance: ESOMEPRAZOLE MAGNESIUM
     Indication: PROPHYLAXIS
     Dosage: UNK
     Route: 065
  3. FUROSEMIDE. [Concomitant]
     Active Substance: FUROSEMIDE
     Indication: PROPHYLAXIS
     Route: 065
     Dates: start: 20181102, end: 20181125
  4. POSACONAZOLE [Concomitant]
     Active Substance: POSACONAZOLE
     Indication: INFECTION PROPHYLAXIS
     Route: 065
     Dates: start: 20181110, end: 20181113
  5. PIPERACILLIN AND TAZOBACTAM [Concomitant]
     Active Substance: PIPERACILLIN SODIUM\TAZOBACTAM SODIUM
     Indication: NEUTROPENIC COLITIS
     Route: 065
     Dates: start: 20181110, end: 20181113
  6. CASPOFUNGINE [Concomitant]
     Active Substance: CASPOFUNGIN
     Indication: PROPHYLAXIS
     Route: 065
     Dates: start: 20181113, end: 20181205
  7. METOPROLOLO [Concomitant]
     Indication: HYPERTENSION
     Dosage: UNK
     Route: 065
  8. ROSUVASTATINA [Concomitant]
     Active Substance: ROSUVASTATIN
     Indication: DYSLIPIDAEMIA
     Dosage: UNK
     Route: 065
  9. OMEGA-3 TRIGLYCERIDES [Concomitant]
     Indication: DYSLIPIDAEMIA
     Dosage: UNK
     Route: 065
  10. AMIKACINE [Concomitant]
     Active Substance: AMIKACIN
     Indication: PNEUMONIA
  11. HUMAN ALBUMIN [Concomitant]
     Active Substance: ALBUMIN HUMAN
     Indication: HYPOALBUMINAEMIA
  12. LAMIVUDINE. [Concomitant]
     Active Substance: LAMIVUDINE
     Indication: PROPHYLAXIS
     Route: 065
     Dates: start: 20181102, end: 20181125
  13. ALIZAPRIDE [Concomitant]
     Active Substance: ALIZAPRIDE
     Indication: CHOLECYSTITIS
  14. CASPOFUNGINE [Concomitant]
     Active Substance: CASPOFUNGIN
     Indication: PNEUMONIA
  15. HUMAN ALBUMIN [Concomitant]
     Active Substance: ALBUMIN HUMAN
     Indication: HYPOALBUMINAEMIA
     Route: 065
     Dates: start: 20181113, end: 20181206
  16. PARACETAMOL [Concomitant]
     Active Substance: ACETAMINOPHEN
     Indication: CHOLECYSTITIS
     Route: 065
     Dates: start: 20181128, end: 20181202
  17. ENOXAPARIN [Concomitant]
     Active Substance: ENOXAPARIN
     Indication: THROMBOSIS PROPHYLAXIS
     Route: 065
     Dates: start: 20181129, end: 20181205
  18. ONDANSETRON [Concomitant]
     Active Substance: ONDANSETRON
     Indication: PROPHYLAXIS
     Dosage: UNK
     Route: 065
     Dates: start: 20181102, end: 20181111
  19. CGP 41251 [Suspect]
     Active Substance: MIDOSTAURIN
     Indication: ACUTE MYELOID LEUKAEMIA
     Dosage: 25 MG, UNK
     Route: 048
     Dates: start: 20181109, end: 20181126
  20. COMPARATOR CYTARABINE [Suspect]
     Active Substance: CYTARABINE
     Indication: ACUTE MYELOID LEUKAEMIA
     Dosage: 314 MG, QD
     Route: 042
     Dates: start: 20181102
  21. OMEPRAZOLE. [Concomitant]
     Active Substance: OMEPRAZOLE
     Indication: GASTRITIS PROPHYLAXIS
     Route: 065
     Dates: start: 20181110, end: 20181208
  22. AMIKACINE [Concomitant]
     Active Substance: AMIKACIN
     Indication: NEUTROPENIC COLITIS
     Route: 065
     Dates: start: 20181110, end: 20181112
  23. LEVOSULPIRIDE [Concomitant]
     Active Substance: LEVOSULPIRIDE
     Indication: CHOLECYSTITIS
     Route: 065
     Dates: start: 20181123, end: 20181126
  24. NITROGLISERIN [Concomitant]
     Indication: ANGINA UNSTABLE
     Dosage: UNK
     Route: 065
     Dates: start: 20110101
  25. BROMAZEPAM [Concomitant]
     Active Substance: BROMAZEPAM
     Indication: ANXIETY
     Dosage: UNK
     Route: 065
     Dates: start: 20181001
  26. SERTRALINE [Concomitant]
     Active Substance: SERTRALINE HYDROCHLORIDE
     Indication: ANXIETY
     Dosage: UNK
     Route: 065
     Dates: start: 20181001
  27. LINEZOLID. [Concomitant]
     Active Substance: LINEZOLID
     Indication: PROPHYLAXIS
     Route: 065
     Dates: start: 20181123, end: 20181206
  28. MORPHINE [Concomitant]
     Active Substance: MORPHINE
     Indication: CHOLECYSTITIS
     Dosage: UNK
     Route: 065
     Dates: start: 20181123, end: 20181127
  29. URSODEOXYCHOLIC ACID [Concomitant]
     Active Substance: URSODIOL
     Indication: CHOLECYSTITIS
     Route: 065
     Dates: start: 20181125, end: 20181125
  30. CGP 41251 [Suspect]
     Active Substance: MIDOSTAURIN
     Dosage: UNK
     Route: 048
     Dates: start: 20181202
  31. METILPREDNISOLONE [Concomitant]
     Active Substance: METHYLPREDNISOLONE
     Indication: PREMEDICATION
     Dosage: UNK
     Route: 065
     Dates: start: 20181102, end: 20181109
  32. COMPARATOR IDARUBICIN [Suspect]
     Active Substance: IDARUBICIN
     Indication: ACUTE MYELOID LEUKAEMIA
     Dosage: 19 MG, QD
     Route: 042
     Dates: start: 20181102
  33. COMPARATOR IDARUBICIN [Suspect]
     Active Substance: IDARUBICIN
     Dosage: 19 MG, QD
     Route: 042
     Dates: start: 20181102
  34. VISUMETAZONE [Concomitant]
     Indication: PROPHYLAXIS
     Route: 065
     Dates: start: 20181103, end: 20181109
  35. ALIZAPRIDE [Concomitant]
     Active Substance: ALIZAPRIDE
     Indication: NEUTROPENIC COLITIS
     Route: 065
     Dates: start: 20181109, end: 20181207
  36. PIPERACILLIN AND TAZOBACTAM [Concomitant]
     Active Substance: PIPERACILLIN SODIUM\TAZOBACTAM SODIUM
     Indication: PNEUMONIA
  37. VANCOMYCIN [Concomitant]
     Active Substance: VANCOMYCIN
     Indication: PNEUMONIA
     Dates: start: 20181112, end: 20181122
  38. MEROPENEM. [Concomitant]
     Active Substance: MEROPENEM
     Indication: PNEUMONIA
     Route: 065
     Dates: start: 20181113, end: 20181129
  39. ACYCLOVIR. [Concomitant]
     Active Substance: ACYCLOVIR
     Indication: PROPHYLAXIS
     Route: 065
     Dates: start: 20181115, end: 20181203
  40. CEFTAZIDIME. [Concomitant]
     Active Substance: CEFTAZIDIME
     Indication: PROPHYLAXIS
     Route: 065
     Dates: start: 20181129, end: 20181205

REACTIONS (1)
  - Cholecystitis [Recovered/Resolved with Sequelae]

NARRATIVE: CASE EVENT DATE: 20181123
